FAERS Safety Report 17216725 (Version 1)
Quarter: 2019Q4

REPORT INFORMATION
  Report Type: Spontaneous
  Country: JP (occurrence: JP)
  Receive Date: 20191230
  Receipt Date: 20191230
  Transmission Date: 20200122
  Serious: Yes (Death, Hospitalization, Other)
  Sender: FDA-Public Use
  Company Number: JP-BRISTOL-MYERS SQUIBB COMPANY-BMS-2019-124363

PATIENT
  Age: 46 Year
  Sex: Male
  Weight: 54 kg

DRUGS (8)
  1. INLYTA [Suspect]
     Active Substance: AXITINIB
     Indication: PRODUCT USED FOR UNKNOWN INDICATION
     Dosage: 14 MG, Q12H
     Route: 048
     Dates: start: 20190528, end: 20190724
  2. INLYTA [Suspect]
     Active Substance: AXITINIB
     Indication: PRODUCT USED FOR UNKNOWN INDICATION
     Dosage: 20 MG, Q12H
     Route: 048
     Dates: start: 20190725, end: 20190821
  3. OPDIVO [Suspect]
     Active Substance: NIVOLUMAB
     Indication: METASTATIC RENAL CELL CARCINOMA
     Dosage: UNK
     Route: 041
     Dates: start: 20180327, end: 20180508
  4. OPDIVO [Suspect]
     Active Substance: NIVOLUMAB
     Indication: PRODUCT USED FOR UNKNOWN INDICATION
     Dosage: 240 MG
     Route: 041
     Dates: start: 20180905, end: 20181121
  5. THYRADIN S [Concomitant]
     Active Substance: LEVOTHYROXINE SODIUM
     Indication: CARDIAC FAILURE
     Dosage: UNK
     Route: 065
  6. YERVOY [Suspect]
     Active Substance: IPILIMUMAB
     Indication: METASTATIC RENAL CELL CARCINOMA
     Dosage: 58 MG
     Route: 041
     Dates: start: 20180905, end: 20181121
  7. INLYTA [Suspect]
     Active Substance: AXITINIB
     Indication: METASTATIC RENAL CELL CARCINOMA
     Dosage: 10 MG, Q12H
     Route: 048
     Dates: start: 20190514, end: 20190527
  8. INLYTA [Suspect]
     Active Substance: AXITINIB
     Indication: PRODUCT USED FOR UNKNOWN INDICATION
     Dosage: 14 MG, Q12H
     Route: 048
     Dates: start: 20190822, end: 20191018

REACTIONS (5)
  - Drug-induced liver injury [Unknown]
  - Multi-organ disorder [Fatal]
  - Cardiac dysfunction [Unknown]
  - Intentional product use issue [Unknown]
  - Cardiac failure [Fatal]

NARRATIVE: CASE EVENT DATE: 20181211
